FAERS Safety Report 8920559 (Version 1)
Quarter: 2012Q4

REPORT INFORMATION
  Report Type: 
  Country: DE (occurrence: DE)
  Receive Date: 20121121
  Receipt Date: 20121121
  Transmission Date: 20130627
  Serious: Yes (Other)
  Sender: FDA-Public Use
  Company Number: DE-BRISTOL-MYERS SQUIBB COMPANY-17085564

PATIENT
  Age: 68 Year
  Sex: Female
  Weight: 67.7 kg

DRUGS (2)
  1. ONGLYZA TABS [Suspect]
     Indication: TYPE 2 DIABETES MELLITUS
     Dosage: Reduced to 2.5mg
     Route: 048
     Dates: start: 20110804
  2. METFORMIN HCL [Suspect]

REACTIONS (1)
  - Weight decreased [Recovering/Resolving]
